FAERS Safety Report 19815770 (Version 2)
Quarter: 2022Q2

REPORT INFORMATION
  Report Type: Spontaneous
  Country: JP (occurrence: JP)
  Receive Date: 20210909
  Receipt Date: 20220525
  Transmission Date: 20220721
  Serious: Yes (Other)
  Sender: FDA-Public Use
  Company Number: JP-FERRING-EVA202101291FERRINGPH

PATIENT

DRUGS (1)
  1. MENOTROPINS [Suspect]
     Active Substance: MENOTROPINS
     Indication: Product used for unknown indication
     Dosage: INJECTION
     Route: 065
     Dates: start: 202010, end: 202010

REACTIONS (1)
  - Urticaria [Unknown]
